FAERS Safety Report 25229462 (Version 3)
Quarter: 2025Q2

REPORT INFORMATION
  Report Type: Spontaneous
  Country: CN (occurrence: CN)
  Receive Date: 20250423
  Receipt Date: 20250514
  Transmission Date: 20250717
  Serious: Yes (Hospitalization, Other)
  Sender: RANBAXY
  Company Number: CN-SUN PHARMACEUTICAL INDUSTRIES LTD-2025R1-504647

PATIENT
  Age: 63 Year
  Sex: Male

DRUGS (3)
  1. LEVODOPA [Interacting]
     Active Substance: LEVODOPA
     Indication: Parkinson^s disease
     Route: 065
  2. SELEGILINE [Interacting]
     Active Substance: SELEGILINE
     Indication: Parkinson^s disease
     Route: 065
  3. CHLORPHENIRAMINE MALEATE\PSEUDOEPHEDRINE HYDROCHLORIDE [Suspect]
     Active Substance: CHLORPHENIRAMINE MALEATE\PSEUDOEPHEDRINE HYDROCHLORIDE
     Indication: Product used for unknown indication

REACTIONS (2)
  - Drug interaction [Unknown]
  - Serotonin syndrome [Unknown]
